FAERS Safety Report 4661411-2 (Version None)
Quarter: 2005Q2

REPORT INFORMATION
  Report Type: 
  Country: None (occurrence: None)
  Receive Date: 20050513
  Receipt Date: 20050505
  Transmission Date: 20051028
  Serious: Yes (Other)
  Sender: FDA-Public Use
  Company Number: CA-GLAXOSMITHKLINE-A0557599A

PATIENT
  Age: 50 Year
  Sex: Male

DRUGS (7)
  1. LAMICTAL [Suspect]
     Indication: DRUG USE FOR UNKNOWN INDICATION
     Dosage: 100MG PER DAY
     Route: 048
  2. ZYPREXA [Suspect]
     Indication: DRUG USE FOR UNKNOWN INDICATION
     Dosage: 30MG PER DAY
     Route: 065
  3. CLOPIXOL [Concomitant]
  4. FLURAZEPAM HCL [Concomitant]
  5. NOZINAN [Concomitant]
  6. PROCYCLIDINE HYDROCHLORIDE 2MG TAB [Concomitant]
  7. TOPAMAX [Concomitant]

REACTIONS (4)
  - GRANULOCYTOPENIA [None]
  - NEUTROPENIA [None]
  - PYREXIA [None]
  - RESPIRATORY ACIDOSIS [None]
